FAERS Safety Report 8774117 (Version 1)
Quarter: 2012Q4

REPORT INFORMATION
  Report Type: 
  Country: JP (occurrence: JP)
  Receive Date: 20120907
  Receipt Date: 20120907
  Transmission Date: 20130627
  Serious: Yes (Other)
  Sender: FDA-Public Use
  Company Number: JP-ROCHE-1108749

PATIENT
  Age: 8 None
  Sex: Male

DRUGS (4)
  1. AVASTIN [Suspect]
     Indication: COLORECTAL CANCER
     Dosage: Dosage is uncertain.
     Route: 041
  2. XELODA [Suspect]
     Indication: COLORECTAL CANCER
     Dosage: Dosage is uncertain.
     Route: 048
  3. 5-FU [Suspect]
     Indication: PRODUCT USED FOR UNKNOWN INDICATION
  4. OXALIPLATIN [Concomitant]
     Indication: COLORECTAL CANCER
     Dosage: Dosage is uncertain.
     Route: 041

REACTIONS (1)
  - Cerebral infarction [Unknown]
